FAERS Safety Report 8151438-0 (Version None)
Quarter: 2012Q1

REPORT INFORMATION
  Report Type: 
  Country: None (occurrence: None)
  Receive Date: 20120220
  Receipt Date: 20120208
  Transmission Date: 20120608
  Serious: Yes (Death)
  Sender: FDA-Public Use
  Company Number: GB-ROCHE-1038553

PATIENT
  Sex: Female
  Weight: 99 kg

DRUGS (1)
  1. MABTHERA [Suspect]
     Indication: RHEUMATOID ARTHRITIS
     Dates: start: 20080618

REACTIONS (2)
  - CEREBROVASCULAR DISORDER [None]
  - PNEUMONIA ASPIRATION [None]
